FAERS Safety Report 7891615-7 (Version None)
Quarter: 2011Q4

REPORT INFORMATION
  Report Type: 
  Country: None (occurrence: None)
  Receive Date: 20111103
  Receipt Date: 20110808
  Transmission Date: 20120403
  Serious: No
  Sender: FDA-Public Use
  Company Number: US-AMGEN-USASP2011040103

PATIENT
  Sex: Male

DRUGS (1)
  1. ENBREL [Suspect]
     Indication: RHEUMATOID ARTHRITIS
     Dates: start: 20070101

REACTIONS (6)
  - IMPAIRED HEALING [None]
  - DRY EYE [None]
  - SKIN INFECTION [None]
  - SKIN ATROPHY [None]
  - RHINORRHOEA [None]
  - FINGER DEFORMITY [None]
